FAERS Safety Report 15315870 (Version 1)
Quarter: 2018Q3

REPORT INFORMATION
  Report Type: Spontaneous
  Country: US (occurrence: US)
  Receive Date: 20180815
  Receipt Date: 20180815
  Transmission Date: 20181010
  Serious: No
  Sender: FDA-Public Use
  Company Number: None

PATIENT
  Age: 34 Year
  Sex: Female
  Weight: 74.25 kg

DRUGS (21)
  1. METHOCARBAMOL. [Concomitant]
     Active Substance: METHOCARBAMOL
  2. ELETRIPTAN. [Concomitant]
     Active Substance: ELETRIPTAN
  3. AIMOVIG [Suspect]
     Active Substance: ERENUMAB-AOOE
     Indication: MIGRAINE
     Dosage: ?          QUANTITY:1 INJECTION(S);OTHER FREQUENCY:SQ ONCE MONTHLY;OTHER ROUTE:SUBCUTANEOUS INJECTION RIGHT THIGH?
     Dates: start: 20180814, end: 20180814
  4. SKELAXIN [Concomitant]
     Active Substance: METAXALONE
  5. METROCLOPRAMIDE [Concomitant]
  6. TOPIRAMATE. [Concomitant]
     Active Substance: TOPIRAMATE
  7. CALCIUM AND VITAMIN D [Concomitant]
     Active Substance: CALCIUM\VITAMIN D
  8. SINGULAIR [Concomitant]
     Active Substance: MONTELUKAST SODIUM
  9. CARBAMAZEPINE. [Concomitant]
     Active Substance: CARBAMAZEPINE
  10. DULERA [Concomitant]
     Active Substance: FORMOTEROL FUMARATE DIHYDRATE\MOMETASONE FUROATE
  11. MAXALT [Concomitant]
     Active Substance: RIZATRIPTAN BENZOATE
  12. IMITREX [Concomitant]
     Active Substance: SUMATRIPTAN SUCCINATE
  13. KLONOPIN [Concomitant]
     Active Substance: CLONAZEPAM
  14. LYRICA [Concomitant]
     Active Substance: PREGABALIN
  15. TIZANIDINE. [Concomitant]
     Active Substance: TIZANIDINE
  16. ZYRTEC [Concomitant]
     Active Substance: CETIRIZINE HYDROCHLORIDE
  17. OMEPRAZOLE. [Concomitant]
     Active Substance: OMEPRAZOLE
  18. CHORASEPTIC [Concomitant]
  19. COMPLEX VITAMIN B12 [Concomitant]
  20. HALLS COUGH DROPS [Concomitant]
  21. MAGNESIUM [Concomitant]
     Active Substance: MAGNESIUM

REACTIONS (6)
  - Injection site erythema [None]
  - Injection site mass [None]
  - Cough [None]
  - Wheezing [None]
  - Injection site swelling [None]
  - Dyspnoea [None]

NARRATIVE: CASE EVENT DATE: 19830911
